FAERS Safety Report 4792076-7 (Version None)
Quarter: 2005Q4

REPORT INFORMATION
  Report Type: 
  Country: None (occurrence: None)
  Receive Date: 20051007
  Receipt Date: 20041105
  Transmission Date: 20060501
  Serious: Yes (Hospitalization, Other)
  Sender: FDA-Public Use
  Company Number: DE-MERCK-0411DEU00111

PATIENT
  Age: 67 Year
  Sex: Female

DRUGS (20)
  1. VIOXX [Suspect]
     Indication: BACK PAIN
     Route: 048
     Dates: start: 20000128, end: 20010201
  2. VIOXX [Suspect]
     Route: 048
     Dates: start: 20010201, end: 20020214
  3. VIOXX [Suspect]
     Route: 048
     Dates: start: 20020101, end: 20040924
  4. VIOXX [Suspect]
     Indication: POLYARTHRITIS
     Route: 048
     Dates: start: 20000128, end: 20010201
  5. VIOXX [Suspect]
     Route: 048
     Dates: start: 20010201, end: 20020214
  6. VIOXX [Suspect]
     Route: 048
     Dates: start: 20020101, end: 20040924
  7. HYDROCHLOROTHIAZIDE AND TRIAMTERENE [Concomitant]
     Route: 048
     Dates: start: 19980101
  8. POTASSIUM BICARBONATE AND POTASSIUM CITRATE [Concomitant]
     Route: 048
     Dates: start: 19980101
  9. THYROID [Concomitant]
     Route: 048
     Dates: start: 19990101
  10. BISOPROLOL FUMARATE [Concomitant]
     Route: 048
     Dates: start: 19990101
  11. MEDICINALPRODUCT NOT SPECIFIED BY SENDER [Concomitant]
     Route: 048
     Dates: start: 19960101
  12. MEDICINALPRODUCT NOT SPECIFIED BY SENDER [Concomitant]
     Route: 048
  13. MEDICINALPRODUCT NOT SPECIFIED BY SENDER [Concomitant]
     Route: 048
     Dates: start: 19750101
  14. MEDICINALPRODUCT NOT SPECIFIED BY SENDER [Concomitant]
     Route: 048
  15. MEDICINALPRODUCT NOT SPECIFIED BY SENDER [Concomitant]
     Route: 048
     Dates: start: 19950101
  16. MEDICINALPRODUCT NOT SPECIFIED BY SENDER [Concomitant]
     Route: 048
     Dates: start: 20000101
  17. MEDICINALPRODUCT NOT SPECIFIED BY SENDER [Concomitant]
     Route: 048
     Dates: start: 20000101
  18. MEDICINALPRODUCT NOT SPECIFIED BY SENDER [Concomitant]
     Route: 048
     Dates: start: 20000101
  19. MEDICINALPRODUCT NOT SPECIFIED BY SENDER [Concomitant]
     Route: 048
  20. MEDICINALPRODUCT NOT SPECIFIED BY SENDER [Concomitant]
     Route: 048

REACTIONS (13)
  - ADVERSE EVENT [None]
  - ANXIETY [None]
  - ASTHMA [None]
  - BALANCE DISORDER [None]
  - CAROTID ARTERY ANEURYSM [None]
  - CEREBRAL HAEMORRHAGE [None]
  - DIZZINESS [None]
  - EYE DISORDER [None]
  - HEADACHE [None]
  - NAUSEA [None]
  - PARALYSIS [None]
  - PERICARDIAL EFFUSION [None]
  - SUBARACHNOID HAEMORRHAGE [None]
